FAERS Safety Report 6200285-5 (Version None)
Quarter: 2009Q2

REPORT INFORMATION
  Report Type: 
  Country: None (occurrence: None)
  Receive Date: 20090522
  Receipt Date: 20090520
  Transmission Date: 20091009
  Serious: Yes (Other)
  Sender: FDA-Public Use
  Company Number: US-BAYER-200917563NA

PATIENT
  Age: 58 Year
  Sex: Male
  Weight: 91 kg

DRUGS (1)
  1. MAGNEVIST [Suspect]
     Indication: TINNITUS
     Dosage: TOTAL DAILY DOSE: 19 ML
     Dates: start: 20090401, end: 20090401

REACTIONS (3)
  - CONJUNCTIVITIS [None]
  - LACRIMATION INCREASED [None]
  - VISUAL FIELD DEFECT [None]
